FAERS Safety Report 7296899-4 (Version None)
Quarter: 2011Q1

REPORT INFORMATION
  Report Type: 
  Country: None (occurrence: None)
  Receive Date: 20110216
  Receipt Date: 20110211
  Transmission Date: 20110831
  Serious: Yes (Life-Threatening)
  Sender: FDA-Public Use
  Company Number: AT-B.I. PHARMACEUTICALS,INC./RIDGEFIELD-2010-AP-00458AP

PATIENT
  Sex: Female
  Weight: 66 kg

DRUGS (11)
  1. MOGADON [Suspect]
     Indication: PROPHYLAXIS
     Dosage: 5 MG
     Route: 048
     Dates: start: 20100915, end: 20100915
  2. PERFALGAN [Suspect]
     Indication: PAIN
     Dosage: 1 G
     Route: 042
     Dates: start: 20100914, end: 20100914
  3. DIPIDOLOR [Suspect]
     Indication: PAIN
     Dosage: 7.5 MG
     Route: 058
     Dates: start: 20100915, end: 20100915
  4. PRADAXA [Suspect]
     Indication: THROMBOSIS PROPHYLAXIS
     Dosage: 110MG DAY OD SURGERY; 220MG DAY AFTER SURGERY
     Route: 048
     Dates: start: 20100914, end: 20100916
  5. NAPROBENE [Concomitant]
     Dosage: 1000 MG
     Route: 048
     Dates: start: 20100915, end: 20100916
  6. VERAPAMIL HYDROCHLORID RETARD [Concomitant]
     Indication: HYPERTENSION
     Dates: end: 20100915
  7. NAPROBENE [Concomitant]
     Indication: PAIN
     Route: 048
     Dates: end: 20100912
  8. ISOPTIN [Concomitant]
     Indication: HYPERTENSION
     Dosage: 480 MG
     Route: 048
  9. SINGULAIR [Concomitant]
     Indication: PROPHYLAXIS
     Dosage: 10 MG
     Route: 048
  10. DIPRIVAN [Suspect]
     Indication: ANAESTHESIA
     Route: 042
     Dates: start: 20100914, end: 20100914
  11. SIMVASTATIN [Suspect]
     Indication: LIPIDS INCREASED
     Dosage: 20 MG
     Route: 048

REACTIONS (3)
  - COAGULATION FACTOR DEFICIENCY [None]
  - LIVER DISORDER [None]
  - RESPIRATORY FAILURE [None]
